FAERS Safety Report 8764646 (Version 2)
Quarter: 2013Q1

REPORT INFORMATION
  Report Type: Report from Study
  Country: GB (occurrence: GB)
  Receive Date: 20120831
  Receipt Date: 20130222
  Transmission Date: 20140127
  Serious: Yes (Life-Threatening, Hospitalization, Disabling)
  Sender: FDA-Public Use
  Company Number: GB-TEVA-355657ISR

PATIENT
  Age: 72 Year
  Sex: Male

DRUGS (12)
  1. PREDNISOLONE [Suspect]
     Indication: PROSTATE CANCER METASTATIC
     Dosage: 10 MILLIGRAM DAILY;
     Route: 048
     Dates: start: 20081014
  2. PREDNISOLONE [Suspect]
     Dosage: 10 MILLIGRAM DAILY;
     Route: 048
     Dates: start: 20110201, end: 20120614
  3. ABIRATERONE ACETATE [Suspect]
     Indication: PROSTATE CANCER METASTATIC
     Dosage: 4 TABLET DAILY;
     Route: 048
     Dates: start: 20081014, end: 20110131
  4. ABIRATERONE ACETATE [Suspect]
     Dosage: 4 TABLET DAILY;
     Route: 048
     Dates: start: 20110201, end: 20120614
  5. ZOLADEX [Concomitant]
     Indication: HORMONE THERAPY
     Route: 058
     Dates: start: 2001
  6. ZOLADEX [Concomitant]
     Route: 058
     Dates: start: 20081014
  7. FOSAMAX [Concomitant]
     Indication: PROSTATE CANCER METASTATIC
     Dosage: 10 MILLIGRAM DAILY;
     Route: 048
     Dates: start: 20080801
  8. FOSAMAX [Concomitant]
     Indication: METASTASIS
  9. PARACETAMOL [Concomitant]
     Indication: CANCER PAIN
     Dosage: 500 MILLIGRAM DAILY;
     Route: 048
     Dates: start: 20080701
  10. VIRIDAL [Concomitant]
     Indication: ERECTILE DYSFUNCTION
     Dosage: 40 MICROGRAM DAILY;
     Route: 017
     Dates: start: 199301
  11. E45 [Concomitant]
     Indication: DRY SKIN
     Route: 061
     Dates: start: 20100202
  12. CALCEOS [Concomitant]
     Indication: HYPOVITAMINOSIS
     Dosage: 2 DOSAGE FORMS DAILY;
     Route: 048
     Dates: start: 20080801

REACTIONS (1)
  - Embolism [Not Recovered/Not Resolved]
